FAERS Safety Report 7011777-3 (Version None)
Quarter: 2010Q3

REPORT INFORMATION
  Report Type: 
  Country: None (occurrence: None)
  Receive Date: 20100923
  Receipt Date: 20090715
  Transmission Date: 20110219
  Serious: No
  Sender: FDA-Public Use
  Company Number: US-WYE-H10168309

PATIENT
  Sex: Female

DRUGS (3)
  1. PREMARIN [Suspect]
     Dosage: UNKNOWN
     Route: 048
     Dates: start: 20090713
  2. GABAPENTIN [Concomitant]
  3. WELLBUTRIN XL [Concomitant]

REACTIONS (1)
  - MEDICATION RESIDUE [None]
